FAERS Safety Report 11272198 (Version 3)
Quarter: 2015Q4

REPORT INFORMATION
  Report Type: Spontaneous
  Country: US (occurrence: US)
  Receive Date: 20150715
  Receipt Date: 20151124
  Transmission Date: 20160304
  Serious: Yes (Hospitalization)
  Sender: FDA-Public Use
  Company Number: US-MALLINCKRODT-T201503318

PATIENT
  Age: 65 Year
  Sex: Male

DRUGS (6)
  1. GABLOFEN [Suspect]
     Active Substance: BACLOFEN
     Dosage: 901 MCG/DAY
     Route: 037
     Dates: start: 2014
  2. TIZANIDINE. [Concomitant]
     Active Substance: TIZANIDINE
  3. GABLOFEN [Suspect]
     Active Substance: BACLOFEN
     Dosage: 1249.4 MCG/DAY
     Dates: start: 201412, end: 201504
  4. GABLOFEN [Suspect]
     Active Substance: BACLOFEN
     Dosage: 1345 MCG/DAY
     Dates: start: 201504
  5. KLONOPIN [Concomitant]
     Active Substance: CLONAZEPAM
  6. GABLOFEN [Suspect]
     Active Substance: BACLOFEN
     Indication: MUSCLE SPASTICITY
     Dosage: UNK
     Route: 037
     Dates: end: 201412

REACTIONS (9)
  - Heart rate decreased [Unknown]
  - Musculoskeletal stiffness [Recovered/Resolved]
  - Somnolence [Unknown]
  - Muscle tightness [Unknown]
  - Gait disturbance [Unknown]
  - Hypotension [Unknown]
  - Hypoaesthesia [Unknown]
  - Muscle spasms [Unknown]
  - Pain [Unknown]

NARRATIVE: CASE EVENT DATE: 201503
